FAERS Safety Report 16669788 (Version 1)
Quarter: 2019Q3

REPORT INFORMATION
  Report Type: Spontaneous
  Country: US (occurrence: US)
  Receive Date: 20190620
  Receipt Date: 20190620
  Transmission Date: 20191004
  Serious: No
  Sender: FDA-Public Use
  Company Number: None

PATIENT
  Age: 70 Year
  Sex: Female
  Weight: 74.39 kg

DRUGS (3)
  1. CLONAZEPAM 1MG [Suspect]
     Active Substance: CLONAZEPAM
     Route: 048
  2. ATIVAN [Suspect]
     Active Substance: LORAZEPAM
     Route: 048
     Dates: start: 20190606
  3. PROPRANOLOL 40MG TAB HER [Suspect]
     Active Substance: PROPRANOLOL HYDROCHLORIDE
     Route: 048
     Dates: start: 20190606

REACTIONS (1)
  - Wrong patient received product [None]

NARRATIVE: CASE EVENT DATE: 20190606
